FAERS Safety Report 9900309 (Version 1)
Quarter: 2014Q1

REPORT INFORMATION
  Report Type: Spontaneous
  Country: US (occurrence: US)
  Receive Date: 20140216
  Receipt Date: 20140216
  Transmission Date: 20141002
  Serious: Yes (Other)
  Sender: FDA-Public Use
  Company Number: US-TEVA-462269USA

PATIENT
  Sex: Female

DRUGS (1)
  1. COPAXONE [Suspect]
     Indication: MULTIPLE SCLEROSIS
     Dates: start: 20131211

REACTIONS (5)
  - Cardiac disorder [Not Recovered/Not Resolved]
  - Cerebrovascular accident [Unknown]
  - Multiple sclerosis relapse [Unknown]
  - Musculoskeletal disorder [Not Recovered/Not Resolved]
  - Migraine [Not Recovered/Not Resolved]
